FAERS Safety Report 5897926-9 (Version None)
Quarter: 2008Q3

REPORT INFORMATION
  Report Type: 
  Country: None (occurrence: None)
  Receive Date: 20080925
  Receipt Date: 20080919
  Transmission Date: 20090109
  Serious: Yes (Other)
  Sender: FDA-Public Use
  Company Number: GB-TEVA-177659ISR

PATIENT
  Age: 45 Year
  Sex: Male

DRUGS (3)
  1. AMITRIPTYLINE HCL [Suspect]
     Indication: DRUG USE FOR UNKNOWN INDICATION
  2. RISPERIDONE [Suspect]
     Route: 030
  3. RISPERIDONE [Suspect]
     Route: 030

REACTIONS (1)
  - ELECTROCARDIOGRAM QT PROLONGED [None]
